FAERS Safety Report 11692829 (Version 1)
Quarter: 2015Q4

REPORT INFORMATION
  Report Type: Spontaneous
  Country: US (occurrence: None)
  Receive Date: 20151102
  Receipt Date: 20151102
  Transmission Date: 20160304
  Serious: No
  Sender: FDA-Public Use
  Company Number: None

PATIENT
  Age: 70 Year
  Sex: Male
  Weight: 55.3 kg

DRUGS (1)
  1. CETUXIMAB [Suspect]
     Active Substance: CETUXIMAB
     Route: 042
     Dates: start: 20150515, end: 20150515

REACTIONS (4)
  - Pruritus [None]
  - Urticaria [None]
  - Erythema multiforme [None]
  - Rash [None]

NARRATIVE: CASE EVENT DATE: 20150515
